FAERS Safety Report 4729120-9 (Version None)
Quarter: 2005Q3

REPORT INFORMATION
  Report Type: 
  Country: None (occurrence: None)
  Receive Date: 20050729
  Receipt Date: 20040601
  Transmission Date: 20060218
  Serious: No
  Sender: FDA-Public Use
  Company Number: US-GLAXOSMITHKLINE-A0512858A

PATIENT
  Age: 30 Year
  Sex: Female

DRUGS (3)
  1. IMITREX [Suspect]
     Indication: MIGRAINE
     Dosage: 100MG AS REQUIRED
     Route: 048
     Dates: start: 20031201, end: 20031201
  2. WELLBUTRIN SR [Concomitant]
     Route: 048
  3. PREVACID [Concomitant]

REACTIONS (5)
  - BURNING SENSATION [None]
  - DIZZINESS [None]
  - ERYTHEMA [None]
  - NAUSEA [None]
  - PARAESTHESIA [None]
